FAERS Safety Report 20698462 (Version 1)
Quarter: 2022Q2

REPORT INFORMATION
  Report Type: Spontaneous
  Country: US (occurrence: US)
  Receive Date: 20220412
  Receipt Date: 20220412
  Transmission Date: 20220721
  Serious: No
  Sender: FDA-Public Use
  Company Number: US-BION-009686

PATIENT
  Sex: Female

DRUGS (4)
  1. ALEVE [Suspect]
     Active Substance: NAPROXEN SODIUM
     Indication: Pain
     Dosage: 1
     Route: 048
     Dates: start: 20210420, end: 20210421
  2. IBUPROFEN [Suspect]
     Active Substance: IBUPROFEN
     Indication: Product used for unknown indication
  3. SIMVASTATIN [Concomitant]
     Active Substance: SIMVASTATIN
  4. CANDESARTAN [Concomitant]
     Active Substance: CANDESARTAN

REACTIONS (2)
  - Drug ineffective [Not Recovered/Not Resolved]
  - Drug effect less than expected [Not Recovered/Not Resolved]
